FAERS Safety Report 9697075 (Version 1)
Quarter: 2013Q4

REPORT INFORMATION
  Report Type: Spontaneous
  Country: CA (occurrence: CA)
  Receive Date: 20131120
  Receipt Date: 20131120
  Transmission Date: 20140711
  Serious: Yes (Hospitalization, Other)
  Sender: FDA-Public Use
  Company Number: CA-AMGEN-CANSP2013081323

PATIENT
  Age: 67 Year
  Sex: Male
  Weight: 76 kg

DRUGS (18)
  1. NEULASTA [Suspect]
     Indication: PRODUCT USED FOR UNKNOWN INDICATION
     Dosage: UNK
     Route: 058
  2. BLEOMYCIN SULPHATE [Suspect]
     Indication: PRODUCT USED FOR UNKNOWN INDICATION
     Dosage: UNK, 3 MONTHS
     Route: 042
  3. CYCLOPHOSPHAMIDE [Suspect]
     Indication: PRODUCT USED FOR UNKNOWN INDICATION
     Dosage: UNK
     Route: 042
  4. ENALAPRIL [Suspect]
     Indication: PRODUCT USED FOR UNKNOWN INDICATION
     Dosage: UNK
     Route: 042
  5. FLUDARABINE [Suspect]
     Indication: PRODUCT USED FOR UNKNOWN INDICATION
     Dosage: UNK, 1 YEAR
     Route: 042
  6. HYDROCHLOROTHIAZIDE [Suspect]
     Indication: PRODUCT USED FOR UNKNOWN INDICATION
     Dosage: UNK
     Route: 042
  7. PREDNISONE [Suspect]
     Indication: PRODUCT USED FOR UNKNOWN INDICATION
     Dosage: UNK, 4 MONTH
     Route: 042
  8. RITUXAN [Suspect]
     Indication: PRODUCT USED FOR UNKNOWN INDICATION
     Dosage: UNK,1 YEAR
     Route: 042
  9. TREANDA [Suspect]
     Indication: PRODUCT USED FOR UNKNOWN INDICATION
     Dosage: UNK
     Route: 042
  10. VINCRISTINE SULFATE [Suspect]
     Indication: PRODUCT USED FOR UNKNOWN INDICATION
     Dosage: UNK, 3 MONTHS
     Route: 042
  11. ANUSOL HC [Concomitant]
     Dosage: UNK
     Route: 054
  12. CHOLECALCIFEROL [Concomitant]
     Dosage: UNK
  13. FLUTICASONE [Concomitant]
     Dosage: UNK
  14. LUTEIN                             /01638501/ [Concomitant]
     Dosage: UNK
  15. OXAZEPAM [Concomitant]
     Dosage: UNK
  16. PROCHLORPERAZINE [Concomitant]
     Dosage: UNK
  17. SERTRALINE [Concomitant]
     Dosage: UNK
  18. TYLENOL                            /00020001/ [Concomitant]
     Dosage: UNK

REACTIONS (3)
  - Blood pressure decreased [Unknown]
  - Drug ineffective [Unknown]
  - Febrile neutropenia [Unknown]
